FAERS Safety Report 22020774 (Version 1)
Quarter: 2023Q1

REPORT INFORMATION
  Report Type: Spontaneous
  Country: US (occurrence: US)
  Receive Date: 20230222
  Receipt Date: 20230222
  Transmission Date: 20230417
  Serious: No
  Sender: FDA-Public Use
  Company Number: US-PFIZER INC-PV202300032825

PATIENT
  Age: 70 Year
  Sex: Female

DRUGS (1)
  1. BOSULIF [Suspect]
     Active Substance: BOSUTINIB MONOHYDRATE
     Dosage: 100 MG (1 TAB PO DAILY X7DAYS, THEN 2TABS PO DAILY X7 DAYS, THEN 3TABS PO DAILY)
     Route: 048

REACTIONS (2)
  - Illness [Unknown]
  - Vomiting [Unknown]
